FAERS Safety Report 7225949-6 (Version None)
Quarter: 2011Q1

REPORT INFORMATION
  Report Type: 
  Country: None (occurrence: None)
  Receive Date: 20110113
  Receipt Date: 20110108
  Transmission Date: 20110831
  Serious: Yes (Other)
  Sender: FDA-Public Use
  Company Number: US-ABBOTT-11P-163-0696435-00

PATIENT
  Age: 60 Year
  Sex: Female

DRUGS (23)
  1. BELLADONNA ALKALOIDS PHENOBARBITOL [Concomitant]
     Indication: PROPHYLAXIS
  2. NOVOLOG [Concomitant]
     Indication: BLOOD GLUCOSE INCREASED
     Dosage: INSULIN PUMP
  3. PREDNISONE [Concomitant]
     Indication: ARTHRITIS
  4. VITAMIN D [Concomitant]
     Indication: VITAMIN SUPPLEMENTATION
  5. VITAMIN B COMPLEX [Concomitant]
     Indication: DIABETIC NEUROPATHY
  6. MAGNESIUM [Concomitant]
     Indication: MINERAL SUPPLEMENTATION
  7. LYRICA [Concomitant]
     Indication: PSORIATIC ARTHROPATHY
     Dosage: 100MG IN THE MORNING AND 200MG IN THE EVENING
  8. HUMIRA [Suspect]
     Indication: PSORIATIC ARTHROPATHY
     Route: 058
     Dates: start: 20101001
  9. BELLADONNA ALKALOIDS PHENOBARBITOL [Concomitant]
     Indication: HEADACHE
  10. ACTOS [Concomitant]
     Indication: BLOOD GLUCOSE INCREASED
  11. MELOXICAM [Concomitant]
     Indication: PAIN
  12. CYMBALTA [Concomitant]
     Indication: NEUROPATHY PERIPHERAL
  13. ALTACE [Concomitant]
     Indication: ISCHAEMIC HEART DISEASE PROPHYLAXIS
  14. MOBIC [Concomitant]
     Indication: PAIN
  15. TRIAMTERENE AND HYDROCHLOROTHIAZIDE [Concomitant]
     Indication: OEDEMA
  16. POTASSIUM [Concomitant]
     Indication: PRODUCT USED FOR UNKNOWN INDICATION
  17. PROPRANOLOL [Concomitant]
     Indication: HYPERTENSION
     Dosage: 40 MG IN THE MORNING AND 20 MG IN THE AFTERNOON
  18. LIPITOR [Concomitant]
     Indication: BLOOD CHOLESTEROL INCREASED
  19. HYDROCODONE [Concomitant]
     Indication: PAIN
     Dosage: 7.5/100MG
  20. METFORMIN HCL [Concomitant]
     Indication: BLOOD GLUCOSE INCREASED
  21. MIRAPEX [Concomitant]
     Indication: RESTLESS LEGS SYNDROME
     Dosage: 0.5MG IN THE MORNING AND 1 MG IN THE EVENING
  22. LASIX [Concomitant]
     Indication: PRODUCT USED FOR UNKNOWN INDICATION
     Dates: end: 20101215
  23. MULTI-VITAMIN [Concomitant]
     Indication: VITAMIN SUPPLEMENTATION

REACTIONS (4)
  - COMPRESSION FRACTURE [None]
  - CRYING [None]
  - SPINAL DISORDER [None]
  - BACK PAIN [None]
